FAERS Safety Report 19926925 (Version 1)
Quarter: 2021Q4

REPORT INFORMATION
  Report Type: Spontaneous
  Country: US (occurrence: US)
  Receive Date: 20211007
  Receipt Date: 20211007
  Transmission Date: 20220303
  Serious: No
  Sender: FDA-Public Use
  Company Number: US-INDIVIOR US-INDV-127382-2020

PATIENT
  Age: 58 Year
  Sex: Male

DRUGS (4)
  1. SUBOXONE [Suspect]
     Active Substance: BUPRENORPHINE HYDROCHLORIDE\NALOXONE HYDROCHLORIDE
     Indication: Pain management
     Dosage: BETWEEN 1-2 MG, QD
     Route: 060
  2. SUBOXONE [Suspect]
     Active Substance: BUPRENORPHINE HYDROCHLORIDE\NALOXONE HYDROCHLORIDE
     Dosage: 0.75 MG, QD
     Route: 060
  3. SUBOXONE [Suspect]
     Active Substance: BUPRENORPHINE HYDROCHLORIDE\NALOXONE HYDROCHLORIDE
     Dosage: 0.5 MG, QD
     Route: 060
  4. PIROXICAM [Concomitant]
     Active Substance: PIROXICAM
     Indication: Depression
     Dosage: UNKNOWN
     Route: 065

REACTIONS (11)
  - Blood testosterone decreased [Unknown]
  - Tooth loss [Unknown]
  - Off label use [Unknown]
  - Glossodynia [Unknown]
  - Intentional underdose [Unknown]
  - Loss of libido [Unknown]
  - Wrong technique in product usage process [Unknown]
  - Insomnia [Unknown]
  - Drug withdrawal syndrome [Unknown]
  - Psychomotor hyperactivity [Unknown]
  - Vomiting [Unknown]
